FAERS Safety Report 8140826-4 (Version None)
Quarter: 2012Q1

REPORT INFORMATION
  Report Type: 
  Country: None (occurrence: None)
  Receive Date: 20120216
  Receipt Date: 20120206
  Transmission Date: 20120608
  Serious: Yes (Other)
  Sender: FDA-Public Use
  Company Number: SE-JNJFOC-20111209505

PATIENT
  Sex: Female
  Weight: 97 kg

DRUGS (18)
  1. METHADON HCL TAB [Concomitant]
     Indication: PRODUCT USED FOR UNKNOWN INDICATION
     Route: 048
     Dates: start: 20110101, end: 20111101
  2. INDERAL [Concomitant]
     Indication: PRODUCT USED FOR UNKNOWN INDICATION
     Route: 048
  3. LYRICA [Concomitant]
     Route: 048
     Dates: start: 20111222
  4. CYANOCOBALAMIN W/FOLIC ACID/PYRIDOXINE [Concomitant]
     Indication: PRODUCT USED FOR UNKNOWN INDICATION
     Route: 048
  5. HERACILLIN [Concomitant]
     Indication: SPONDYLITIS
     Route: 048
     Dates: start: 20111007
  6. LYRICA [Concomitant]
     Route: 048
  7. LYRICA [Concomitant]
     Route: 048
     Dates: start: 20111010
  8. METFORMIN HCL [Concomitant]
     Indication: TYPE 2 DIABETES MELLITUS
     Route: 048
     Dates: end: 20111220
  9. SPIRONOLACTONE [Concomitant]
     Indication: PRODUCT USED FOR UNKNOWN INDICATION
     Route: 048
     Dates: start: 20111220
  10. LAKTULOS [Concomitant]
     Indication: PRODUCT USED FOR UNKNOWN INDICATION
     Route: 048
  11. PALEXIA [Suspect]
     Route: 048
     Dates: start: 20111117, end: 20111227
  12. KETOGAN [Concomitant]
     Indication: PRODUCT USED FOR UNKNOWN INDICATION
     Route: 048
     Dates: start: 20111101, end: 20111118
  13. LAXOBERAL [Concomitant]
     Indication: PRODUCT USED FOR UNKNOWN INDICATION
     Route: 048
  14. PALEXIA [Suspect]
     Indication: BACK PAIN
     Route: 048
     Dates: start: 20120105
  15. LYRICA [Concomitant]
     Indication: PRODUCT USED FOR UNKNOWN INDICATION
     Route: 048
     Dates: start: 20111109
  16. LYRICA [Concomitant]
     Route: 048
  17. LANTUS [Concomitant]
     Indication: TYPE 2 DIABETES MELLITUS
     Route: 058
  18. FUROSEMIDE [Concomitant]
     Indication: PRODUCT USED FOR UNKNOWN INDICATION
     Route: 048
     Dates: start: 20111220

REACTIONS (1)
  - THROMBOCYTOPENIA [None]
